FAERS Safety Report 10656426 (Version 2)
Quarter: 2014Q4

REPORT INFORMATION
  Report Type: Spontaneous
  Country: AU (occurrence: AU)
  Receive Date: 20141216
  Receipt Date: 20141216
  Transmission Date: 20150529
  Serious: Yes (Hospitalization)
  Sender: FDA-Public Use
  Company Number: AU-MYLANLABS-2014M1007553

PATIENT

DRUGS (1)
  1. AKAMIN 50 [Suspect]
     Active Substance: MINOCYCLINE HYDROCHLORIDE
     Indication: ACNE
     Dosage: 50 MG, BID
     Dates: start: 20140404

REACTIONS (4)
  - Visual acuity reduced [None]
  - Benign intracranial hypertension [Recovering/Resolving]
  - Toxicity to various agents [Unknown]
  - Papilloedema [None]
